FAERS Safety Report 8544176-3 (Version None)
Quarter: 2012Q3

REPORT INFORMATION
  Report Type: 
  Country: None (occurrence: None)
  Receive Date: 20120727
  Receipt Date: 20120713
  Transmission Date: 20120928
  Serious: Yes (Disabling, Other)
  Sender: FDA-Public Use
  Company Number: GB-BAUSCH-BL-2012-000102

PATIENT
  Sex: Female
  Weight: 50 kg

DRUGS (8)
  1. SIMVASTATIN [Concomitant]
  2. ALENDRONATE SODIUM [Concomitant]
  3. LAMOTRIGINE [Concomitant]
  4. PREDNISOLONE [Suspect]
     Indication: SARCOIDOSIS
     Route: 048
     Dates: start: 20051120
  5. OMEPRAZOLE MAGNESIUM [Concomitant]
  6. CARBAMAZEPINE [Suspect]
     Indication: EPILEPSY
     Route: 048
     Dates: start: 20111109
  7. DICLOFENAC SODIUM [Suspect]
     Route: 048
     Dates: start: 20051110
  8. AZATHIOPRINE [Concomitant]

REACTIONS (6)
  - IMPAIRED WORK ABILITY [None]
  - EPILEPSY [None]
  - PULMONARY SARCOIDOSIS [None]
  - GAIT DISTURBANCE [None]
  - ARTHRALGIA [None]
  - OSTEOPOROSIS [None]
